FAERS Safety Report 4279634-3 (Version None)
Quarter: 2004Q1

REPORT INFORMATION
  Report Type: 
  Country: None (occurrence: None)
  Receive Date: 20040123
  Receipt Date: 20040109
  Transmission Date: 20041129
  Serious: Yes (Hospitalization)
  Sender: FDA-Public Use
  Company Number: 220001M03CHE

PATIENT
  Age: 63 Year
  Sex: Female

DRUGS (5)
  1. SAIZEN [Suspect]
  2. KLIOGEST ^NOVO INDUSTRI^ [Concomitant]
  3. PRASTERONE [Concomitant]
  4. UBIDECARENONE [Concomitant]
  5. SYMPICORT [Concomitant]

REACTIONS (2)
  - BREAST CANCER METASTATIC [None]
  - METASTASES TO LYMPH NODES [None]
